FAERS Safety Report 10305522 (Version 4)
Quarter: 2014Q4

REPORT INFORMATION
  Report Type: Spontaneous
  Country: BR (occurrence: BR)
  Receive Date: 20140715
  Receipt Date: 20141204
  Transmission Date: 20150528
  Serious: Yes (Hospitalization, Other)
  Sender: FDA-Public Use
  Company Number: PHHY2014BR085256

PATIENT
  Sex: Female
  Weight: 50 kg

DRUGS (3)
  1. ALENDRONATE SANDOZ [Suspect]
     Active Substance: ALENDRONATE SODIUM
     Indication: OSTEOPOROSIS
     Dosage: 70 MG, QD
     Route: 048
  2. SYNTHROID [Concomitant]
     Active Substance: LEVOTHYROXINE SODIUM
     Dosage: 150 MG, EVERY ALTERNATE DAY
     Route: 065
  3. SYNTHROID [Concomitant]
     Active Substance: LEVOTHYROXINE SODIUM
     Indication: THYROID DISORDER
     Dosage: 137 MG, EVERY ALTERNATE DAY
     Route: 065

REACTIONS (8)
  - Depression [Unknown]
  - Pancreatitis [Recovering/Resolving]
  - Amylase increased [Unknown]
  - Feeding disorder [Unknown]
  - Feeling abnormal [Unknown]
  - Migraine [Unknown]
  - Gastric disorder [Not Recovered/Not Resolved]
  - Alopecia [Not Recovered/Not Resolved]
